FAERS Safety Report 10091793 (Version 1)
Quarter: 2014Q2

REPORT INFORMATION
  Report Type: Spontaneous
  Country: US (occurrence: US)
  Receive Date: 20140421
  Receipt Date: 20140421
  Transmission Date: 20141212
  Serious: No
  Sender: FDA-Public Use
  Company Number: US-GILEAD-2012-0056833

PATIENT
  Age: 33 Year
  Sex: Female

DRUGS (2)
  1. LETAIRIS [Suspect]
     Indication: PULMONARY HYPERTENSION
     Dosage: 10 MG, UNK
     Route: 048
     Dates: start: 20120105
  2. TYVASO [Concomitant]
     Indication: PULMONARY ARTERIAL HYPERTENSION

REACTIONS (2)
  - Pain in extremity [Unknown]
  - Headache [Unknown]
